FAERS Safety Report 9342644 (Version 1)
Quarter: 2013Q2

REPORT INFORMATION
  Report Type: Spontaneous
  Country: IT (occurrence: IT)
  Receive Date: 20130611
  Receipt Date: 20130611
  Transmission Date: 20140414
  Serious: Yes (Hospitalization)
  Sender: FDA-Public Use
  Company Number: IT-TEVA-410212ISR

PATIENT
  Age: 67 Year
  Sex: Female

DRUGS (1)
  1. FLUOROURACILE TEVA [Suspect]
     Indication: ADENOCARCINOMA OF COLON
     Dosage: 640 MILLIGRAM DAILY;
     Route: 040
     Dates: start: 20130306, end: 20130308

REACTIONS (1)
  - Pancreatitis acute [Recovered/Resolved]
